FAERS Safety Report 11795037 (Version 2)
Quarter: 2016Q1

REPORT INFORMATION
  Report Type: Spontaneous
  Country: BR (occurrence: BR)
  Receive Date: 20151202
  Receipt Date: 20160311
  Transmission Date: 20160525
  Serious: Yes (Other)
  Sender: FDA-Public Use
  Company Number: BR-JNJFOC-20151200237

PATIENT
  Sex: Female
  Weight: 98 kg

DRUGS (2)
  1. AZATHIOPRINE. [Concomitant]
     Active Substance: AZATHIOPRINE
     Route: 065
  2. REMICADE [Suspect]
     Active Substance: INFLIXIMAB
     Indication: CROHN^S DISEASE
     Dosage: 10 DOSAGE FORM
     Route: 042
     Dates: start: 20141201

REACTIONS (3)
  - Weight decreased [Unknown]
  - Anal fistula [Recovered/Resolved]
  - Urinary tract infection [Recovering/Resolving]
